FAERS Safety Report 17742296 (Version 2)
Quarter: 2020Q2

REPORT INFORMATION
  Report Type: Spontaneous
  Country: FR (occurrence: FR)
  Receive Date: 20200504
  Receipt Date: 20200511
  Transmission Date: 20200714
  Serious: Yes (Other)
  Sender: FDA-Public Use
  Company Number: FR-MYLANLABS-2020M1043035

PATIENT
  Age: 59 Year
  Sex: Male

DRUGS (6)
  1. GANCICLOVIR. [Suspect]
     Active Substance: GANCICLOVIR
     Dosage: 4 INJECTIONS, 2000 MICROG/0.05 ML
     Route: 031
  2. ACICLOVIR [Suspect]
     Active Substance: ACYCLOVIR
     Indication: VARICELLA ZOSTER VIRUS INFECTION
     Dosage: 10 MG/KG FOR 8 HOURS
     Route: 042
  3. GANCICLOVIR. [Suspect]
     Active Substance: GANCICLOVIR
     Indication: VARICELLA ZOSTER VIRUS INFECTION
     Dosage: UNK
     Route: 042
  4. ACETYLSALICYLIC ACID [Concomitant]
     Active Substance: ASPIRIN
     Indication: ANTIPLATELET THERAPY
     Dosage: 250 MG/DAY
  5. FOSCARNET [Suspect]
     Active Substance: FOSCARNET
     Indication: VARICELLA ZOSTER VIRUS INFECTION
     Dosage: UNK
     Route: 042
  6. VALGANCICLOVIR. [Suspect]
     Active Substance: VALGANCICLOVIR
     Indication: VARICELLA ZOSTER VIRUS INFECTION
     Dosage: UNK
     Route: 048

REACTIONS (4)
  - Product use in unapproved indication [Recovered/Resolved]
  - Intentional product use issue [Unknown]
  - Off label use [Unknown]
  - Macular fibrosis [Unknown]
